FAERS Safety Report 17485498 (Version 2)
Quarter: 2020Q1

REPORT INFORMATION
  Report Type: Spontaneous
  Country: US (occurrence: US)
  Receive Date: 20200302
  Receipt Date: 20200324
  Transmission Date: 20200409
  Serious: No
  Sender: FDA-Public Use
  Company Number: US-SA-2020SA050108

PATIENT
  Age: 23 Year
  Sex: Female

DRUGS (55)
  1. DESONIDE. [Concomitant]
     Active Substance: DESONIDE
     Indication: RASH
     Dosage: LOTION, FOR 1 MONTH
     Route: 061
  2. FEXOFENADINE [Concomitant]
     Active Substance: FEXOFENADINE HYDROCHLORIDE
     Indication: SCRATCH
  3. BETAMETHASONE DIPROPIONATE. [Concomitant]
     Active Substance: BETAMETHASONE DIPROPIONATE
     Indication: SCRATCH
  4. TACROLIMUS. [Concomitant]
     Active Substance: TACROLIMUS
     Indication: DRY SKIN
  5. AVEENO ANTI-ITCH [CALAMINE;CAMPHOR;PRAMOCAINE HYDROCHLORIDE] [Concomitant]
     Indication: SCRATCH
  6. AVEENO ANTI-ITCH [CALAMINE;CAMPHOR;PRAMOCAINE HYDROCHLORIDE] [Concomitant]
     Indication: DRY SKIN
  7. CLOBETASOL 0.05% [Concomitant]
     Active Substance: CLOBETASOL
     Indication: PRURITUS
  8. CALCIPOTRIENE. [Concomitant]
     Active Substance: CALCIPOTRIENE
     Indication: RASH
     Dosage: OINTMENT, 1 MONTH
     Route: 061
  9. CEPHALEXIN [CEFALEXIN] [Concomitant]
     Active Substance: CEPHALEXIN
     Indication: RASH
     Dosage: , 7 DAYS500 MG, QD
     Route: 048
  10. CEPHALEXIN [CEFALEXIN] [Concomitant]
     Active Substance: CEPHALEXIN
     Indication: SCRATCH
  11. FAMOTIDINE. [Concomitant]
     Active Substance: FAMOTIDINE
     Indication: RASH
     Dosage: 20 MG, QD, FOR 1 MONTH
     Route: 048
  12. BETAMETHASONE DIPROPIONATE. [Concomitant]
     Active Substance: BETAMETHASONE DIPROPIONATE
     Indication: RASH
     Dosage: UNK UNK, HS,FOR 1 MONTH
     Route: 061
  13. TACROLIMUS. [Concomitant]
     Active Substance: TACROLIMUS
     Indication: RASH
     Dosage: ONCE IN MORNING FOR 1 MONTH
     Route: 061
  14. FLUOCINONIDE. [Concomitant]
     Active Substance: FLUOCINONIDE
     Indication: PRURITUS
  15. CALCIPOTRIENE. [Concomitant]
     Active Substance: CALCIPOTRIENE
     Indication: SCRATCH
  16. CEPHALEXIN [CEFALEXIN] [Concomitant]
     Active Substance: CEPHALEXIN
     Indication: DRY SKIN
  17. EUCRISA [Concomitant]
     Active Substance: CRISABOROLE
     Indication: PRURITUS
  18. MONTELUKAST [Concomitant]
     Active Substance: MONTELUKAST SODIUM
     Indication: DRY SKIN
  19. FLUOCINONIDE. [Concomitant]
     Active Substance: FLUOCINONIDE
     Indication: SCRATCH
  20. CLOBETASOL 0.05% [Concomitant]
     Active Substance: CLOBETASOL
     Indication: RASH
     Dosage: 1 MONTH
     Route: 061
  21. CEPHALEXIN [CEFALEXIN] [Concomitant]
     Active Substance: CEPHALEXIN
     Indication: PRURITUS
  22. CETRIZINE [Concomitant]
     Active Substance: CETIRIZINE HYDROCHLORIDE
     Indication: SCRATCH
  23. DESONIDE. [Concomitant]
     Active Substance: DESONIDE
     Indication: PRURITUS
  24. DESONIDE. [Concomitant]
     Active Substance: DESONIDE
     Indication: SCRATCH
  25. CLOBETASOL 0.05% [Concomitant]
     Active Substance: CLOBETASOL
     Indication: SCRATCH
  26. CALCIPOTRIENE. [Concomitant]
     Active Substance: CALCIPOTRIENE
     Indication: PRURITUS
  27. EUCRISA [Concomitant]
     Active Substance: CRISABOROLE
     Indication: RASH
     Route: 061
  28. MONTELUKAST [Concomitant]
     Active Substance: MONTELUKAST SODIUM
     Indication: RASH
     Dosage: 10 MG, QD, 2 MONTHS
     Route: 048
  29. MONTELUKAST [Concomitant]
     Active Substance: MONTELUKAST SODIUM
     Indication: PRURITUS
  30. CETRIZINE [Concomitant]
     Active Substance: CETIRIZINE HYDROCHLORIDE
     Indication: RASH
     Dosage: 10 MG, QD, 60 DAYS
     Route: 048
  31. DUPIXENT [Suspect]
     Active Substance: DUPILUMAB
     Indication: DRY SKIN
  32. BETAMETHASONE DIPROPIONATE. [Concomitant]
     Active Substance: BETAMETHASONE DIPROPIONATE
     Indication: DRY SKIN
  33. TACROLIMUS. [Concomitant]
     Active Substance: TACROLIMUS
     Indication: PRURITUS
  34. AVEENO ANTI-ITCH [CALAMINE;CAMPHOR;PRAMOCAINE HYDROCHLORIDE] [Concomitant]
     Indication: RASH
     Dosage: 3%-1%, 1 MONTH
     Route: 061
  35. AVEENO ANTI-ITCH [CALAMINE;CAMPHOR;PRAMOCAINE HYDROCHLORIDE] [Concomitant]
     Indication: PRURITUS
  36. FLUOCINONIDE. [Concomitant]
     Active Substance: FLUOCINONIDE
     Indication: RASH
     Dosage: 1 MONTH
     Route: 061
  37. CLOBETASOL 0.05% [Concomitant]
     Active Substance: CLOBETASOL
     Indication: DRY SKIN
  38. FEXOFENADINE [Concomitant]
     Active Substance: FEXOFENADINE HYDROCHLORIDE
     Indication: DRY SKIN
  39. FAMOTIDINE. [Concomitant]
     Active Substance: FAMOTIDINE
     Indication: SCRATCH
  40. FAMOTIDINE. [Concomitant]
     Active Substance: FAMOTIDINE
     Indication: DRY SKIN
  41. MONTELUKAST [Concomitant]
     Active Substance: MONTELUKAST SODIUM
     Indication: SCRATCH
  42. CETRIZINE [Concomitant]
     Active Substance: CETIRIZINE HYDROCHLORIDE
     Indication: DRY SKIN
  43. DUPIXENT [Suspect]
     Active Substance: DUPILUMAB
     Indication: DERMATITIS ATOPIC
     Dosage: 300 MG, QOW
     Route: 058
     Dates: start: 20200116
  44. DUPIXENT [Suspect]
     Active Substance: DUPILUMAB
     Indication: PRURITUS
  45. FEXOFENADINE [Concomitant]
     Active Substance: FEXOFENADINE HYDROCHLORIDE
     Indication: PRURITUS
  46. BETAMETHASONE DIPROPIONATE. [Concomitant]
     Active Substance: BETAMETHASONE DIPROPIONATE
     Indication: PRURITUS
  47. CALCIPOTRIENE. [Concomitant]
     Active Substance: CALCIPOTRIENE
     Indication: DRY SKIN
  48. EUCRISA [Concomitant]
     Active Substance: CRISABOROLE
     Indication: SCRATCH
  49. DESONIDE. [Concomitant]
     Active Substance: DESONIDE
     Indication: DRY SKIN
  50. FEXOFENADINE [Concomitant]
     Active Substance: FEXOFENADINE HYDROCHLORIDE
     Indication: RASH
     Dosage: 180 MG, QD,FOR 1 MONTH
     Route: 048
  51. FAMOTIDINE. [Concomitant]
     Active Substance: FAMOTIDINE
     Indication: PRURITUS
  52. TACROLIMUS. [Concomitant]
     Active Substance: TACROLIMUS
     Indication: SCRATCH
  53. FLUOCINONIDE. [Concomitant]
     Active Substance: FLUOCINONIDE
     Indication: DRY SKIN
  54. EUCRISA [Concomitant]
     Active Substance: CRISABOROLE
     Indication: DRY SKIN
  55. CETRIZINE [Concomitant]
     Active Substance: CETIRIZINE HYDROCHLORIDE
     Indication: PRURITUS

REACTIONS (5)
  - Ear pruritus [Unknown]
  - Pruritus [Unknown]
  - Swelling face [Unknown]
  - Dry skin [Unknown]
  - Erythema [Unknown]

NARRATIVE: CASE EVENT DATE: 20200117
